FAERS Safety Report 4890817-1 (Version None)
Quarter: 2006Q1

REPORT INFORMATION
  Report Type: 
  Country: None (occurrence: None)
  Receive Date: 20060123
  Receipt Date: 20060110
  Transmission Date: 20060701
  Serious: Yes (Other)
  Sender: FDA-Public Use
  Company Number: 2006007459

PATIENT
  Sex: Female

DRUGS (2)
  1. CELEBREX [Suspect]
     Indication: MONARTHRITIS
     Dosage: 200 MG (200 MG, 1 IN 1 D), ORAL
     Route: 048
  2. VITAMINS (VITAMINS) [Concomitant]

REACTIONS (4)
  - CATARACT [None]
  - CATARACT OPERATION COMPLICATION [None]
  - RETINAL DYSTROPHY [None]
  - VISUAL ACUITY REDUCED [None]
